FAERS Safety Report 8052159-5 (Version None)
Quarter: 2012Q1

REPORT INFORMATION
  Report Type: 
  Country: None (occurrence: None)
  Receive Date: 20120118
  Receipt Date: 20120112
  Transmission Date: 20120608
  Serious: No
  Sender: FDA-Public Use
  Company Number: US-PFIZER INC-2012010147

PATIENT
  Sex: Female
  Weight: 68.027 kg

DRUGS (7)
  1. TOPROL-XL [Concomitant]
     Indication: HYPERTENSION
     Dosage: UNK
  2. SYNTHROID [Concomitant]
     Indication: HYPOTHYROIDISM
     Dosage: UNK
  3. SERTRALINE HYDROCHLORIDE [Suspect]
     Dosage: 100 MG, 1X/DAY
     Route: 048
     Dates: start: 20111221, end: 20111225
  4. EFFEXOR XR [Suspect]
     Indication: POSTOPERATIVE CARE
     Dosage: 50 MG, 1X/DAY
     Route: 048
  5. EFFEXOR XR [Suspect]
     Indication: FEELING HOT
     Dosage: 150 MG, 1X/DAY
     Route: 048
  6. EFFEXOR XR [Suspect]
     Dosage: 225 MG, 1X/DAY
     Route: 048
     Dates: end: 20111201
  7. CELEXA [Suspect]
     Dosage: 40 MG, 1X/DAY
     Route: 048
     Dates: start: 20111201, end: 20111201

REACTIONS (9)
  - ANXIETY [None]
  - PANIC ATTACK [None]
  - MALAISE [None]
  - DEPRESSION [None]
  - TREMOR [None]
  - HYPERVENTILATION [None]
  - VOMITING [None]
  - NAUSEA [None]
  - CRYING [None]
